FAERS Safety Report 4926280-1 (Version None)
Quarter: 2006Q1

REPORT INFORMATION
  Report Type: 
  Country: None (occurrence: None)
  Receive Date: 20060228
  Receipt Date: 20051227
  Transmission Date: 20060701
  Serious: No
  Sender: FDA-Public Use
  Company Number: US-GLAXOSMITHKLINE-A0587051A

PATIENT
  Age: 35 Year
  Sex: Male

DRUGS (3)
  1. LAMICTAL [Suspect]
     Indication: DEPRESSION
     Dosage: 50MG PER DAY
     Route: 048
     Dates: start: 20050101
  2. SYNTHROID [Concomitant]
  3. ATIVAN [Concomitant]

REACTIONS (1)
  - RASH [None]
